FAERS Safety Report 18358655 (Version 1)
Quarter: 2020Q4

REPORT INFORMATION
  Report Type: Spontaneous
  Country: US (occurrence: US)
  Receive Date: 20201008
  Receipt Date: 20201008
  Transmission Date: 20210114
  Serious: No
  Sender: FDA-Public Use
  Company Number: US-AUROBINDO-AUR-APL-2020-031614

PATIENT
  Age: 88 Year
  Sex: Female
  Weight: 66.6 kg

DRUGS (2)
  1. CLINDAMYCIN HYDROCHLORIDE CAPSULES USP 300 MG [Suspect]
     Active Substance: CLINDAMYCIN HYDROCHLORIDE
     Indication: SKIN BACTERIAL INFECTION
  2. CLINDAMYCIN HYDROCHLORIDE CAPSULES USP 300 MG [Suspect]
     Active Substance: CLINDAMYCIN HYDROCHLORIDE
     Indication: SCRATCH
     Dosage: 300 MILLIGRAM, 3 TIMES A DAY
     Route: 065
     Dates: start: 20200521, end: 20200530

REACTIONS (5)
  - Peripheral swelling [Not Recovered/Not Resolved]
  - Papule [Not Recovered/Not Resolved]
  - Skin exfoliation [Recovering/Resolving]
  - Dysgeusia [Not Recovered/Not Resolved]
  - Blister [Not Recovered/Not Resolved]
